FAERS Safety Report 7291481-7 (Version None)
Quarter: 2011Q1

REPORT INFORMATION
  Report Type: 
  Country: None (occurrence: None)
  Receive Date: 20110214
  Receipt Date: 20110201
  Transmission Date: 20110831
  Serious: No
  Sender: FDA-Public Use
  Company Number: US-ELI_LILLY_AND_COMPANY-US201102000937

PATIENT
  Age: 93 Year
  Sex: Male

DRUGS (6)
  1. KLONOPIN [Concomitant]
  2. ROZEREM [Concomitant]
  3. ANDROGEL [Concomitant]
  4. CYMBALTA [Suspect]
     Indication: DEPRESSION
     Dosage: 20 MG, DAILY (1/D)
     Route: 048
  5. CYMBALTA [Suspect]
     Dosage: 20 MG, QOD
     Route: 048
  6. PROTONIX [Concomitant]

REACTIONS (4)
  - ALANINE AMINOTRANSFERASE INCREASED [None]
  - ASPARTATE AMINOTRANSFERASE INCREASED [None]
  - URINARY RETENTION [None]
  - INTENTIONAL DRUG MISUSE [None]
